FAERS Safety Report 4364502-9 (Version None)
Quarter: 2004Q2

REPORT INFORMATION
  Report Type: 
  Country: None (occurrence: None)
  Receive Date: 20040513
  Receipt Date: 20040226
  Transmission Date: 20050107
  Serious: Yes (Other)
  Sender: FDA-Public Use
  Company Number: 2004201115US

PATIENT
  Age: 34 Year
  Sex: Female

DRUGS (1)
  1. DEPO-PROVERA [Suspect]

REACTIONS (19)
  - ABDOMINAL DISTENSION [None]
  - ALOPECIA [None]
  - ARTHRALGIA [None]
  - ASTHENIA [None]
  - BACK PAIN [None]
  - BREAST TENDERNESS [None]
  - DEPRESSED MOOD [None]
  - HEADACHE [None]
  - HOT FLUSH [None]
  - INFERTILITY [None]
  - LIBIDO DECREASED [None]
  - METRORRHAGIA [None]
  - MUSCLE CRAMP [None]
  - NAUSEA [None]
  - NERVOUSNESS [None]
  - OEDEMA PERIPHERAL [None]
  - PELVIC PAIN [None]
  - RASH [None]
  - VAGINAL DISCHARGE [None]
